FAERS Safety Report 16043512 (Version 4)
Quarter: 2019Q1

REPORT INFORMATION
  Report Type: Spontaneous
  Country: US (occurrence: US)
  Receive Date: 20190306
  Receipt Date: 20190318
  Transmission Date: 20190418
  Serious: Yes (Other)
  Sender: FDA-Public Use
  Company Number: US-ASTRAZENECA-2019SE30755

PATIENT
  Age: 896 Month
  Sex: Female

DRUGS (1)
  1. LUMOXITI [Suspect]
     Active Substance: MOXETUMOMAB PASUDOTOX-TDFK
     Indication: HAIRY CELL LEUKAEMIA
     Route: 042
     Dates: start: 20190211, end: 20190213

REACTIONS (9)
  - Dyspnoea [Recovered/Resolved]
  - Abdominal discomfort [Unknown]
  - Capillary leak syndrome [Recovered/Resolved]
  - Hypotension [Recovered/Resolved]
  - Weight increased [Recovered/Resolved]
  - Fluid retention [Unknown]
  - Renal failure [Unknown]
  - Oedema peripheral [Recovered/Resolved]
  - Respiratory symptom [Unknown]

NARRATIVE: CASE EVENT DATE: 201902
